FAERS Safety Report 16288721 (Version 3)
Quarter: 2020Q4

REPORT INFORMATION
  Report Type: Spontaneous
  Country: US (occurrence: US)
  Receive Date: 20190509
  Receipt Date: 20201001
  Transmission Date: 20210113
  Serious: Yes (Hospitalization, Other)
  Sender: FDA-Public Use
  Company Number: US-TAKEDA-2019TUS028178

PATIENT
  Age: 71 Year
  Sex: Male

DRUGS (1)
  1. NINLARO [Suspect]
     Active Substance: IXAZOMIB CITRATE
     Indication: PLASMA CELL MYELOMA
     Dosage: 4 MILLIGRAM, 1/WEEK
     Route: 048
     Dates: start: 20170407

REACTIONS (5)
  - Adverse event [Unknown]
  - Tooth infection [Unknown]
  - Impaired healing [Unknown]
  - Osteomyelitis [Unknown]
  - Escherichia infection [Unknown]

NARRATIVE: CASE EVENT DATE: 201901
